FAERS Safety Report 6010704-5 (Version None)
Quarter: 2008Q4

REPORT INFORMATION
  Report Type: 
  Country: None (occurrence: None)
  Receive Date: 20081216
  Receipt Date: 20081201
  Transmission Date: 20090506
  Serious: Yes (Hospitalization)
  Sender: FDA-Public Use
  Company Number: 2008EK000216

PATIENT
  Age: 26 Year
  Sex: Male

DRUGS (2)
  1. NICARDIPINE HCL [Suspect]
     Indication: VASOSPASM
     Dosage: 5 MG; X1; IART; 11 MG X1; IART
     Route: 013
  2. VERAPAMIL [Suspect]
     Indication: VASOSPASM
     Dosage: 11 MG; X1; IA; 9 MG;X1; IA
     Route: 014

REACTIONS (2)
  - EXTRADURAL HAEMATOMA [None]
  - HYDROCEPHALUS [None]
